FAERS Safety Report 7442551-1 (Version None)
Quarter: 2011Q2

REPORT INFORMATION
  Report Type: 
  Country: None (occurrence: None)
  Receive Date: 20110426
  Receipt Date: 20110426
  Transmission Date: 20111010
  Serious: Yes (Hospitalization)
  Sender: FDA-Public Use
  Company Number: None

PATIENT
  Age: 81 Year
  Sex: Female
  Weight: 68.0396 kg

DRUGS (2)
  1. CEFDINIR [Suspect]
     Indication: ASTHMA
     Dosage: ONE TWICE/DAY PO
     Route: 048
     Dates: start: 20110419, end: 20110420
  2. CEFDINIR [Suspect]
     Indication: BRONCHITIS
     Dosage: ONE TWICE/DAY PO
     Route: 048
     Dates: start: 20110419, end: 20110420

REACTIONS (5)
  - FAECES DISCOLOURED [None]
  - DIARRHOEA [None]
  - VOMITING [None]
  - COUGH [None]
  - RESPIRATORY DISORDER [None]
